FAERS Safety Report 10456511 (Version 1)
Quarter: 2014Q3

REPORT INFORMATION
  Report Type: Spontaneous
  Country: GB (occurrence: None)
  Receive Date: 20140912
  Receipt Date: 20140912
  Transmission Date: 20150326
  Serious: Yes (Life-Threatening, Hospitalization, Other)
  Sender: FDA-Public Use
  Company Number: FK21403605

PATIENT
  Age: 70 Year
  Sex: Female

DRUGS (17)
  1. LANSOPRAZOLE (LANSOPRAZOLE) [Concomitant]
     Active Substance: LANSOPRAZOLE
  2. PREDNISOLONE (PREDNISOLONE) [Concomitant]
     Active Substance: PREDNISOLONE
  3. RAMIPRIL (RAMIPRIL) [Suspect]
     Active Substance: RAMIPRIL
     Indication: PRODUCT USED FOR UNKNOWN INDICATION
     Dosage: 2.5 MG, 1 IN 1 D, ORAL
     Route: 048
     Dates: end: 20120623
  4. DOSULEPIN HYDROCHLORIDE [Concomitant]
     Active Substance: DOTHIEPIN HYDROCHLORIDE
  5. ASPIRIN (ACETYLSALICYLIC ACID) [Concomitant]
     Active Substance: ASPIRIN
  6. RANITIDINE [Concomitant]
     Active Substance: RANITIDINE\RANITIDINE HYDROCHLORIDE
  7. PETHIDINE [Suspect]
     Active Substance: MEPERIDINE
     Indication: PRODUCT USED FOR UNKNOWN INDICATION
     Route: 048
     Dates: end: 20120623
  8. FOLIC ACID (FOLIC ACID) [Concomitant]
     Active Substance: FOLIC ACID
  9. HYDROCORTISONE (HYDROCORTISONE) [Concomitant]
     Active Substance: HYDROCORTISONE
  10. NEBIVOLOL (NEBIVOLOL) [Concomitant]
  11. ALENDRONIC ACID (ALENDRONIC ACID) [Concomitant]
     Active Substance: ALENDRONIC ACID
  12. METHOTREXATE (METHOTREXATE) [Concomitant]
     Active Substance: METHOTREXATE
  13. TEMAZEPAM (TEMAZEPAM) [Concomitant]
     Active Substance: TEMAZEPAM
  14. SIMVASTATIN (SIMVASTATIN) [Concomitant]
     Active Substance: SIMVASTATIN
  15. FUROSEMIDE (MANUFACTURER UNKNOWN) (FUROSEMIDE) (FUROSEMIDE) [Suspect]
     Active Substance: FUROSEMIDE
     Indication: PRODUCT USED FOR UNKNOWN INDICATION
     Route: 048
     Dates: end: 20120623
  16. FLUOXETINE (FLUOXETINE) [Concomitant]
     Active Substance: FLUOXETINE HYDROCHLORIDE
  17. PREGABALIN (PREGABALIN) [Concomitant]
     Active Substance: PREGABALIN

REACTIONS (12)
  - Addison^s disease [None]
  - Pneumonia [None]
  - Toxicity to various agents [None]
  - Sepsis [None]
  - Constipation [None]
  - Dyspnoea [None]
  - Hypotension [None]
  - Proctalgia [None]
  - Lower respiratory tract infection [None]
  - Renal failure acute [None]
  - Malaise [None]
  - Tachycardia [None]

NARRATIVE: CASE EVENT DATE: 20120623
